FAERS Safety Report 13346645 (Version 2)
Quarter: 2017Q2

REPORT INFORMATION
  Report Type: Spontaneous
  Country: PE (occurrence: PE)
  Receive Date: 20170317
  Receipt Date: 20170425
  Transmission Date: 20170830
  Serious: Yes (Other)
  Sender: FDA-Public Use
  Company Number: PE-PFIZER INC-2017110608

PATIENT
  Age: 84 Year
  Sex: Female

DRUGS (1)
  1. AMLODIPINE BESYLATE AND ATORVASTATIN CALCIUM [Suspect]
     Active Substance: AMLODIPINE BESYLATE\ATORVASTATIN CALCIUM
     Dosage: AMLODIPINE BESILATE 5 MG/ ATORVASTATIN CALCIUM 40 MG], 1X/DAY

REACTIONS (2)
  - Upper limb fracture [Unknown]
  - Myopia [Unknown]
